FAERS Safety Report 22045152 (Version 1)
Quarter: 2023Q1

REPORT INFORMATION
  Report Type: Report from Study
  Country: CO (occurrence: CO)
  Receive Date: 20230228
  Receipt Date: 20230228
  Transmission Date: 20230418
  Serious: Yes (Hospitalization)
  Sender: FDA-Public Use
  Company Number: CO-20230223-10213.0

PATIENT
  Age: 58 Year
  Sex: Female

DRUGS (5)
  1. CERTOLIZUMAB PEGOL [Suspect]
     Active Substance: CERTOLIZUMAB PEGOL
     Indication: Crohn^s disease
     Dosage: 200 MILLIGRAM
     Route: 058
     Dates: start: 20210126, end: 20230118
  2. MESALAMINE [Concomitant]
     Active Substance: MESALAMINE
     Indication: Crohn^s disease
     Dosage: 2 MILLIGRAM
     Route: 048
  3. LOPERAMIDE [Concomitant]
     Active Substance: LOPERAMIDE
     Indication: Crohn^s disease
     Dosage: UNK
     Route: 048
  4. ESOMEPRAZOLE [Concomitant]
     Active Substance: ESOMEPRAZOLE
     Indication: Crohn^s disease
     Dosage: UNK
     Route: 048
  5. SCOPOLAMINE [Concomitant]
     Active Substance: SCOPOLAMINE
     Indication: Crohn^s disease
     Dosage: UNK
     Route: 048

REACTIONS (2)
  - Urinary tract infection [Recovering/Resolving]
  - Haematuria [Recovering/Resolving]

NARRATIVE: CASE EVENT DATE: 20221222
